FAERS Safety Report 10794372 (Version 1)
Quarter: 2015Q1

REPORT INFORMATION
  Report Type: Spontaneous
  Country: US (occurrence: US)
  Receive Date: 20150213
  Receipt Date: 20150213
  Transmission Date: 20150721
  Serious: Yes (Death, Other)
  Sender: FDA-Public Use
  Company Number: US-FRI-1000074294

PATIENT
  Sex: Male

DRUGS (1)
  1. SAPHRIS [Suspect]
     Active Substance: ASENAPINE MALEATE
     Route: 060
     Dates: start: 20130109

REACTIONS (5)
  - Circulatory collapse [Fatal]
  - Toxicity to various agents [Fatal]
  - Pulmonary alveolar haemorrhage [Fatal]
  - Pulmonary oedema [Fatal]
  - Respiratory failure [Fatal]

NARRATIVE: CASE EVENT DATE: 20130129
